FAERS Safety Report 22316431 (Version 3)
Quarter: 2025Q2

REPORT INFORMATION
  Report Type: Spontaneous
  Country: US (occurrence: US)
  Receive Date: 20230513
  Receipt Date: 20250603
  Transmission Date: 20250717
  Serious: Yes (Other)
  Sender: AUROBINDO
  Company Number: US-MLMSERVICE-20230427-4253523-1

PATIENT
  Age: 7 Decade
  Sex: Female

DRUGS (4)
  1. METHOTREXATE [Suspect]
     Active Substance: METHOTREXATE
     Indication: Leptomeningeal myelomatosis
     Dosage: 12 MILLIGRAM, EVERY WEEK (12 MG WAS PLANNED WEEKLY AND INITIATED ON CYCLE 1 DAY 27)
     Route: 037
  2. DEXAMETHASONE [Suspect]
     Active Substance: DEXAMETHASONE
     Indication: Leptomeningeal myelomatosis
     Route: 042
  3. ABEMACICLIB [Suspect]
     Active Substance: ABEMACICLIB
     Indication: Leptomeningeal myelomatosis
     Dosage: 1 CYCLICAL, ONCE A DAY
     Route: 065
  4. FULVESTRANT [Concomitant]
     Active Substance: FULVESTRANT
     Indication: Leptomeningeal myelomatosis
     Route: 030

REACTIONS (4)
  - Asthenia [Recovered/Resolved]
  - Mouth ulceration [Recovered/Resolved]
  - Pancytopenia [Recovered/Resolved]
  - Drug ineffective [Unknown]
